FAERS Safety Report 9517454 (Version 2)
Quarter: 2013Q4

REPORT INFORMATION
  Report Type: Spontaneous
  Country: US (occurrence: US)
  Receive Date: 20130911
  Receipt Date: 20131029
  Transmission Date: 20140711
  Serious: Yes (Other)
  Sender: FDA-Public Use
  Company Number: US-PFIZER INC-2013258334

PATIENT
  Age: 41 Year
  Sex: Female
  Weight: 95.69 kg

DRUGS (5)
  1. GLUCOTROL [Suspect]
     Indication: DIABETES MELLITUS
     Dosage: 5 MG, 2X/DAY
  2. NITROGLYCERIN [Suspect]
     Indication: CARDIAC DISORDER
     Dosage: UNK
  3. NITROGLYCERIN [Suspect]
     Indication: CARDIAC DISORDER
     Dosage: UNK, AS NEEDED
  4. METOPROLOL [Concomitant]
     Dosage: 25 MG, 2X/DAY
  5. ASPIRIN [Concomitant]
     Dosage: UNK, 1X/DAY

REACTIONS (1)
  - Myocardial infarction [Recovered/Resolved]
